FAERS Safety Report 9263727 (Version 3)
Quarter: 2013Q2

REPORT INFORMATION
  Report Type: Spontaneous
  Country: JP (occurrence: JP)
  Receive Date: 20130430
  Receipt Date: 20130628
  Transmission Date: 20140414
  Serious: Yes (Other)
  Sender: FDA-Public Use
  Company Number: PHHY2013JP041344

PATIENT
  Age: 43 Year
  Sex: Female

DRUGS (9)
  1. DICLOFENAC [Suspect]
     Indication: ARTHRALGIA
     Dosage: 100 MG, QD
     Route: 054
  2. INFLIXIMAB [Suspect]
     Dosage: UNK UKN, UNK
     Dates: start: 2007
  3. INFLIXIMAB [Suspect]
     Dosage: UNK UKN, UNK
     Dates: start: 2011
  4. ETRETINATE [Concomitant]
     Dosage: 10 MG, QD
     Route: 048
  5. MIZORIBINE [Concomitant]
     Dosage: 150 MG, QD
  6. METHOTREXATE [Concomitant]
     Dosage: UNK UKN, UNK
  7. LANSOPRAZOLE [Concomitant]
     Indication: BACK PAIN
     Dosage: 15 MG, QD
  8. CEFOTIAM [Concomitant]
     Route: 042
  9. CEFTRIAXONE [Concomitant]
     Route: 042

REACTIONS (10)
  - Amyloidosis [Unknown]
  - Gastrointestinal erosion [Unknown]
  - Ileal ulcer [Unknown]
  - Small intestinal haemorrhage [Unknown]
  - Jejunal ulcer [Unknown]
  - Haematochezia [Recovered/Resolved]
  - Diarrhoea [Recovered/Resolved]
  - Abdominal pain [Recovered/Resolved]
  - Anaemia [Recovered/Resolved]
  - Pyrexia [Unknown]
